FAERS Safety Report 19841624 (Version 1)
Quarter: 2021Q3

REPORT INFORMATION
  Report Type: Spontaneous
  Country: US (occurrence: US)
  Receive Date: 20210915
  Receipt Date: 20210915
  Transmission Date: 20211014
  Serious: Yes (Hospitalization, Other)
  Sender: FDA-Public Use
  Company Number: US-PERRIGO-21US024781

PATIENT
  Age: 13 Year
  Sex: Male

DRUGS (5)
  1. MESALAZINE [Suspect]
     Active Substance: MESALAMINE
     Indication: COLITIS ULCERATIVE
     Dosage: UNK
     Route: 065
  2. HYDROCORTISONE. [Concomitant]
     Active Substance: HYDROCORTISONE
     Indication: COLITIS ULCERATIVE
     Route: 054
  3. MONTELUKAST [Concomitant]
     Active Substance: MONTELUKAST SODIUM
     Indication: ASTHMA
  4. PREDNISONE. [Concomitant]
     Active Substance: PREDNISONE
     Indication: COLITIS ULCERATIVE
     Dosage: WEANING DOWN ON A PROLONGED COURSE
     Route: 048
  5. SALBUTAMOL [Concomitant]
     Active Substance: ALBUTEROL
     Indication: ASTHMA
     Dosage: METERED?DOSE INHALER AS NEEDED
     Route: 055

REACTIONS (6)
  - Cardiac failure [Unknown]
  - Hypotension [Recovered/Resolved]
  - Ventricular dysfunction [Recovered/Resolved]
  - Hypersensitivity [Recovered/Resolved]
  - Pericardial effusion [Recovered/Resolved]
  - Myocarditis [Recovered/Resolved]
